FAERS Safety Report 6665163-6 (Version None)
Quarter: 2010Q2

REPORT INFORMATION
  Report Type: 
  Country: None (occurrence: None)
  Receive Date: 20100402
  Receipt Date: 20100322
  Transmission Date: 20101027
  Serious: Yes (Hospitalization, Other)
  Sender: FDA-Public Use
  Company Number: GR-BRISTOL-MYERS SQUIBB COMPANY-15028665

PATIENT
  Age: 22 Year
  Sex: Male

DRUGS (9)
  1. BLEOMYCIN SULFATE [Suspect]
     Indication: B-CELL LYMPHOMA
  2. DOXORUBICIN HCL [Suspect]
     Indication: B-CELL LYMPHOMA
  3. CYCLOPHOSPHAMIDE [Suspect]
     Indication: B-CELL LYMPHOMA
  4. VINCRISTINE [Suspect]
     Indication: B-CELL LYMPHOMA
  5. METHOTREXATE [Suspect]
     Indication: B-CELL LYMPHOMA
  6. LEUCOVORIN CALCIUM [Suspect]
     Indication: B-CELL LYMPHOMA
  7. PREDNISONE TAB [Suspect]
     Indication: B-CELL LYMPHOMA
  8. METHYLPREDNISOLONE ACETATE [Suspect]
     Route: 048
  9. GRANULOCYTE CSF [Suspect]

REACTIONS (3)
  - BONE MARROW NECROSIS [None]
  - CONUS MEDULLARIS SYNDROME [None]
  - FAT EMBOLISM [None]
